FAERS Safety Report 16933737 (Version 2)
Quarter: 2019Q4

REPORT INFORMATION
  Report Type: Spontaneous
  Country: NL (occurrence: NL)
  Receive Date: 20191018
  Receipt Date: 20191231
  Transmission Date: 20200122
  Serious: Yes (Other)
  Sender: FDA-Public Use
  Company Number: NL-TEVA-2019-NL-1122343

PATIENT
  Sex: Female
  Weight: 83 kg

DRUGS (3)
  1. EUTHYROX [Interacting]
     Active Substance: LEVOTHYROXINE SODIUM
     Indication: HYPOTHYROIDISM
     Dosage: EVERY OTHER DAY 150 OTHER DAYS, EUTHYROX (LEVOTHYROXINE) TABLET, 137 UG (MICROGRAM)
     Dates: start: 201908
  2. OMEPRAZOL [Suspect]
     Active Substance: OMEPRAZOLE
     Route: 065
  3. COLECALCIFEROL [Concomitant]
     Active Substance: CHOLECALCIFEROL

REACTIONS (9)
  - Neuralgia [Not Recovered/Not Resolved]
  - Product complaint [Unknown]
  - Suicidal ideation [Not Recovered/Not Resolved]
  - Diarrhoea [Not Recovered/Not Resolved]
  - Vision blurred [Not Recovered/Not Resolved]
  - Panic reaction [Not Recovered/Not Resolved]
  - Peripheral coldness [Not Recovered/Not Resolved]
  - Drug interaction [Not Recovered/Not Resolved]
  - Headache [Not Recovered/Not Resolved]
